FAERS Safety Report 23755732 (Version 1)
Quarter: 2024Q2

REPORT INFORMATION
  Report Type: Spontaneous
  Country: US (occurrence: None)
  Receive Date: 20240417
  Receipt Date: 20240417
  Transmission Date: 20240716
  Serious: No
  Sender: FDA-Public Use
  Company Number: None

PATIENT
  Age: 69 Year
  Sex: Female

DRUGS (25)
  1. AMBRISENTAN [Suspect]
     Active Substance: AMBRISENTAN
     Indication: Pulmonary hypertension
     Dosage: FREQUENCY : DAILY;?
     Route: 048
     Dates: start: 20160421
  2. VELETRI [Concomitant]
     Active Substance: EPOPROSTENOL
  3. FUROSEMIDE [Concomitant]
  4. MIDODRINE [Concomitant]
  5. DIPHENHYDRAMINE [Concomitant]
  6. LOPERAMIDE [Concomitant]
     Active Substance: LOPERAMIDE
  7. BUPROPION [Concomitant]
     Active Substance: BUPROPION
  8. astelin [Concomitant]
  9. CELLCEPT [Concomitant]
     Active Substance: MYCOPHENOLATE MOFETIL
  10. NARCAN [Concomitant]
     Active Substance: NALOXONE HYDROCHLORIDE
  11. OXYCODONE [Concomitant]
     Active Substance: OXYCODONE\OXYCODONE HYDROCHLORIDE
  12. ONDANSETRON [Concomitant]
  13. XOPENEX [Concomitant]
  14. SPIRONOLACTONE [Concomitant]
  15. LEVOTHYROXINE [Concomitant]
  16. BENZONATATE [Concomitant]
     Active Substance: BENZONATATE
  17. BUSPIRONE [Concomitant]
  18. NORTRIPTYLINE [Concomitant]
     Active Substance: NORTRIPTYLINE
  19. SUCRALFATE [Concomitant]
     Active Substance: SUCRALFATE
  20. THIAMINE HYDROCHLORIDE [Concomitant]
     Active Substance: THIAMINE HYDROCHLORIDE
  21. PANTOPRAZOLE [Concomitant]
     Active Substance: PANTOPRAZOLE
  22. oxygen intranasal [Concomitant]
  23. MELATONIN [Concomitant]
  24. VITAMINS [Concomitant]
     Active Substance: VITAMINS
  25. SANDOSTATIN [Concomitant]

REACTIONS (1)
  - Right ventricular failure [None]

NARRATIVE: CASE EVENT DATE: 20240403
